FAERS Safety Report 8884733 (Version 1)
Quarter: 2012Q4

REPORT INFORMATION
  Report Type: 
  Country: US (occurrence: US)
  Receive Date: 20121105
  Receipt Date: 20121105
  Transmission Date: 20130627
  Serious: Yes (Hospitalization)
  Sender: FDA-Public Use
  Company Number: US-AMGEN-USASP2012069098

PATIENT
  Age: 55 Year
  Sex: Female

DRUGS (1)
  1. ENBREL [Suspect]
     Indication: RHEUMATOID ARTHRITIS
     Dosage: 50mg weekly

REACTIONS (5)
  - Acute febrile neutrophilic dermatosis [Not Recovered/Not Resolved]
  - Compartment syndrome [Recovered/Resolved]
  - Polychondritis [Not Recovered/Not Resolved]
  - Rheumatoid arthritis [Not Recovered/Not Resolved]
  - Cognitive disorder [Not Recovered/Not Resolved]
